FAERS Safety Report 12352722 (Version 1)
Quarter: 2016Q2

REPORT INFORMATION
  Report Type: Spontaneous
  Country: CH (occurrence: CH)
  Receive Date: 20160510
  Receipt Date: 20160510
  Transmission Date: 20160815
  Serious: Yes (Other)
  Sender: FDA-Public Use
  Company Number: CH-OTONOMY INC.-2016OTO00016

PATIENT
  Age: 78 Year
  Sex: Male

DRUGS (3)
  1. CIPROFLOXACIN. [Suspect]
     Active Substance: CIPROFLOXACIN
     Dosage: 800 MG, 1X/DAY
     Route: 042
  2. DIPIPERON [Suspect]
     Active Substance: PIPAMPERONE
     Dosage: 120 MG, 1X/DAY
     Route: 048
  3. HALOPERIDOL. [Suspect]
     Active Substance: HALOPERIDOL
     Dosage: 2 MG, 1X/DAY
     Route: 048

REACTIONS (4)
  - Medication error [Unknown]
  - Drug interaction [Unknown]
  - Blood magnesium decreased [None]
  - Electrocardiogram QT prolonged [Unknown]
